FAERS Safety Report 11821738 (Version 4)
Quarter: 2016Q1

REPORT INFORMATION
  Report Type: Spontaneous
  Country: GB (occurrence: GB)
  Receive Date: 20151210
  Receipt Date: 20160325
  Transmission Date: 20160525
  Serious: Yes (Other)
  Sender: FDA-Public Use
  Company Number: GB-TEVA-614508ACC

PATIENT
  Age: 71 Year
  Sex: Female

DRUGS (2)
  1. AMLODIPINE [Suspect]
     Active Substance: AMLODIPINE BESYLATE
     Indication: PRODUCT USED FOR UNKNOWN INDICATION
     Route: 065
  2. HERCEPTIN [Suspect]
     Active Substance: TRASTUZUMAB
     Indication: PRODUCT USED FOR UNKNOWN INDICATION
     Dosage: 450 MG
     Route: 058

REACTIONS (27)
  - Urine flow decreased [Unknown]
  - Urinary retention [Unknown]
  - Myalgia [Not Recovered/Not Resolved]
  - Tenderness [Unknown]
  - Arthralgia [Not Recovered/Not Resolved]
  - Musculoskeletal stiffness [Unknown]
  - Onychoclasis [Not Recovered/Not Resolved]
  - Dry skin [Unknown]
  - Rhinorrhoea [Unknown]
  - Dysuria [Unknown]
  - Trigeminal neuralgia [Unknown]
  - Sinus headache [Unknown]
  - Pruritus [Unknown]
  - Blood pressure increased [Unknown]
  - Fall [Unknown]
  - Photophobia [Unknown]
  - Local swelling [Unknown]
  - Skin abrasion [Unknown]
  - Dizziness [Unknown]
  - Feeling abnormal [Unknown]
  - Fatigue [Not Recovered/Not Resolved]
  - Hepatic neoplasm [Unknown]
  - Gingival pain [Unknown]
  - Bladder irritation [Unknown]
  - Nasal congestion [Unknown]
  - Lacrimation increased [Not Recovered/Not Resolved]
  - Neoplasm [Unknown]

NARRATIVE: CASE EVENT DATE: 2010
